FAERS Safety Report 7110769-3 (Version None)
Quarter: 2010Q4

REPORT INFORMATION
  Report Type: 
  Country: None (occurrence: None)
  Receive Date: 20101118
  Receipt Date: 20101109
  Transmission Date: 20110411
  Serious: Yes (Hospitalization)
  Sender: FDA-Public Use
  Company Number: B0684893A

PATIENT
  Sex: Female

DRUGS (6)
  1. AUGMENTIN [Suspect]
     Dosage: 2U PER DAY
     Route: 048
     Dates: start: 20101030, end: 20101102
  2. OKI [Suspect]
     Dosage: 1U PER DAY
     Route: 048
     Dates: start: 20101030, end: 20101102
  3. TRANSTEC [Suspect]
     Indication: BACK PAIN
     Route: 062
     Dates: start: 20101026, end: 20101101
  4. LEVOTUSS [Concomitant]
     Indication: COUGH
  5. HALCION [Concomitant]
  6. PARIET [Concomitant]

REACTIONS (7)
  - ALANINE AMINOTRANSFERASE INCREASED [None]
  - ASPARTATE AMINOTRANSFERASE INCREASED [None]
  - DIZZINESS [None]
  - FATIGUE [None]
  - NAUSEA [None]
  - TRANSAMINASES INCREASED [None]
  - VOMITING [None]
